FAERS Safety Report 23231635 (Version 1)
Quarter: 2023Q4

REPORT INFORMATION
  Report Type: Spontaneous
  Country: US (occurrence: None)
  Receive Date: 20231124
  Receipt Date: 20231124
  Transmission Date: 20240110
  Serious: Yes (Other)
  Sender: FDA-Public Use
  Company Number: None

PATIENT
  Age: 25 Year
  Sex: Male
  Weight: 69.75 kg

DRUGS (5)
  1. CAPLYTA [Suspect]
     Active Substance: LUMATEPERONE
     Indication: Bipolar disorder
     Dosage: OTHER QUANTITY : 1 CAPSULE(S);?FREQUENCY : AT BEDTIME;?
     Route: 048
     Dates: start: 20231102, end: 20231102
  2. STRATTERA [Suspect]
     Active Substance: ATOMOXETINE HYDROCHLORIDE
  3. Concerta ER 27 mg [Concomitant]
  4. Zarbees Sleep with Melatonin (5 mg melatonin, 50 mg L-theanine, 5 mg G [Concomitant]
  5. Lactase fast act enzymes [Concomitant]

REACTIONS (10)
  - Feeling hot [None]
  - Chest discomfort [None]
  - Skin disorder [None]
  - Dry mouth [None]
  - Dry skin [None]
  - Feeling abnormal [None]
  - Blepharospasm [None]
  - Gait disturbance [None]
  - Tremor [None]
  - Asthenia [None]

NARRATIVE: CASE EVENT DATE: 20231102
